FAERS Safety Report 15717149 (Version 1)
Quarter: 2018Q4

REPORT INFORMATION
  Report Type: Spontaneous
  Country: US (occurrence: US)
  Receive Date: 20181129
  Receipt Date: 20181129
  Transmission Date: 20190205
  Serious: No
  Sender: FDA-Public Use
  Company Number: None

PATIENT

DRUGS (2)
  1. POTASSIUM CHLORIDE 10MEQ ER TAB 10 MEQ MYLAN [Suspect]
     Active Substance: POTASSIUM CHLORIDE
  2. POTASSIUM CITRATE 10MEQ ER [Suspect]
     Active Substance: POTASSIUM CITRATE

REACTIONS (2)
  - Product dispensing error [None]
  - Wrong product administered [None]
